FAERS Safety Report 10302773 (Version 1)
Quarter: 2014Q3

REPORT INFORMATION
  Report Type: Spontaneous
  Country: US (occurrence: US)
  Receive Date: 20140714
  Receipt Date: 20140714
  Transmission Date: 20150326
  Serious: Yes (Hospitalization)
  Sender: FDA-Public Use
  Company Number: US-MYLANLABS-2014S1016050

PATIENT
  Age: 58 Year
  Sex: Female
  Weight: 81.65 kg

DRUGS (2)
  1. FENTANYL TRANSDERMAL SYSTEM [Suspect]
     Active Substance: FENTANYL
     Indication: MUSCULOSKELETAL PAIN
     Dosage: CHANGED Q72H
     Route: 062
     Dates: start: 201402, end: 20140218
  2. MORPHINE SULFATE. [Concomitant]
     Active Substance: MORPHINE SULFATE
     Indication: BREAKTHROUGH PAIN
     Route: 048

REACTIONS (5)
  - Dyspnoea [Recovered/Resolved]
  - Dysarthria [Recovered/Resolved]
  - Somnolence [Recovered/Resolved]
  - Fatigue [Recovered/Resolved]
  - Wrong technique in drug usage process [Recovered/Resolved]

NARRATIVE: CASE EVENT DATE: 20140218
